FAERS Safety Report 7231052-1 (Version None)
Quarter: 2011Q1

REPORT INFORMATION
  Report Type: 
  Country: None (occurrence: None)
  Receive Date: 20110118
  Receipt Date: 20110106
  Transmission Date: 20110831
  Serious: No
  Sender: FDA-Public Use
  Company Number: US-B.I. PHARMACEUTICALS,INC./RIDGEFIELD-2010-BP-13614BP

PATIENT
  Age: 81 Year
  Sex: Male

DRUGS (13)
  1. LUPRON [Concomitant]
     Indication: NEOPLASM MALIGNANT
  2. POTASSIUM [Concomitant]
  3. PRADAXA [Suspect]
     Indication: ATRIAL FIBRILLATION
     Dosage: 300 MG
     Route: 048
     Dates: start: 20101117
  4. M.V.I. [Concomitant]
  5. VIT C [Concomitant]
  6. SLEEPING PILL [Concomitant]
     Indication: INSOMNIA
  7. LIPITOR [Concomitant]
     Indication: BLOOD CHOLESTEROL INCREASED
  8. ASA [Concomitant]
     Indication: CARDIAC DISORDER
  9. MAGNESIUM [Concomitant]
  10. LISINOPRIL [Concomitant]
     Indication: HYPERTENSION
  11. DARVOCET-N 100 [Concomitant]
     Indication: ARTHRITIS
  12. CASODEX [Concomitant]
     Indication: PROSTATE CANCER
  13. PROSTON [Concomitant]

REACTIONS (6)
  - ABDOMINAL DISCOMFORT [None]
  - NAUSEA [None]
  - FAECES DISCOLOURED [None]
  - RED BLOOD CELLS URINE POSITIVE [None]
  - ASTHENIA [None]
  - SOMNOLENCE [None]
